FAERS Safety Report 21167822 (Version 1)
Quarter: 2022Q3

REPORT INFORMATION
  Report Type: Report from Study
  Country: JP (occurrence: JP)
  Receive Date: 20220803
  Receipt Date: 20220803
  Transmission Date: 20221027
  Serious: Yes (Death)
  Sender: FDA-Public Use
  Company Number: JP-ELI_LILLY_AND_COMPANY-JP202208000006

PATIENT
  Age: 71 Year
  Sex: Female
  Weight: 52 kg

DRUGS (10)
  1. RAMUCIRUMAB [Suspect]
     Active Substance: RAMUCIRUMAB
     Indication: Colon cancer
     Dosage: 8 MG/KG, CYCLICAL
     Route: 041
     Dates: start: 20201013, end: 20220712
  2. FLUOROURACIL [Concomitant]
     Active Substance: FLUOROURACIL
     Indication: Colon cancer
     Dosage: 2400 MG/M2, CYCLICAL
     Route: 048
     Dates: start: 20201013, end: 20220712
  3. LEVOLEUCOVORIN CALCIUM [Concomitant]
     Active Substance: LEVOLEUCOVORIN CALCIUM
     Indication: Colon cancer
     Dosage: 200 MG/M2, CYCLICAL
     Route: 041
     Dates: start: 20201013, end: 20220712
  4. RABEPRAZOLE SODIUM [Concomitant]
     Active Substance: RABEPRAZOLE SODIUM
     Indication: Gastritis prophylaxis
     Dosage: UNK, EACH MORNING
     Route: 048
     Dates: start: 20200409
  5. CARBAZOCHROME SULFONATE NA [Concomitant]
     Indication: Tumour haemorrhage
     Dosage: UNK, TID
     Route: 048
     Dates: start: 20220118
  6. LOXOPROFEN SODIUM DIHYDRATE [Concomitant]
     Active Substance: LOXOPROFEN SODIUM DIHYDRATE
     Indication: Stoma site pain
     Dosage: UNK, PRN
     Route: 048
     Dates: start: 202003
  7. POTASSIUM ASPARTATE [Concomitant]
     Active Substance: POTASSIUM ASPARTATE
     Indication: Hypokalaemia
     Dosage: UNK, TID
     Route: 048
     Dates: start: 20220524
  8. AZOSEMIDE [Concomitant]
     Active Substance: AZOSEMIDE
     Indication: Oedema
     Dosage: UNK, EACH MORNING
     Route: 048
     Dates: start: 20201222
  9. SPIRONOLACTONE [Concomitant]
     Active Substance: SPIRONOLACTONE
     Indication: Oedema
     Dosage: UNK UNK, EACH MORNING
     Route: 048
     Dates: start: 20220712
  10. HALCION [Concomitant]
     Active Substance: TRIAZOLAM
     Indication: Insomnia
     Dosage: UNK, DAILY
     Route: 048
     Dates: start: 20201027

REACTIONS (1)
  - Large intestine perforation [Fatal]

NARRATIVE: CASE EVENT DATE: 20220728
